FAERS Safety Report 10162242 (Version 1)
Quarter: 2014Q2

REPORT INFORMATION
  Report Type: Spontaneous
  Country: US (occurrence: US)
  Receive Date: 20140509
  Receipt Date: 20140509
  Transmission Date: 20141212
  Serious: Yes (Other)
  Sender: FDA-Public Use
  Company Number: US-SA-2014SA057785

PATIENT
  Age: 86 Year
  Sex: Male

DRUGS (3)
  1. LANTUS SOLOSTAR [Suspect]
     Indication: DIABETES MELLITUS
     Dosage: DOSE:8-10UNITS?DAILY DOSE:8-10UNITS
     Route: 065
     Dates: start: 201311
  2. PREDNISONE [Suspect]
     Indication: POLYMYOSITIS
     Route: 065
     Dates: start: 201311
  3. SOLOSTAR [Concomitant]
     Dates: start: 201311

REACTIONS (7)
  - Syncope [Not Recovered/Not Resolved]
  - Feeling cold [Not Recovered/Not Resolved]
  - Chills [Not Recovered/Not Resolved]
  - Weight decreased [Not Recovered/Not Resolved]
  - Anaemia [Not Recovered/Not Resolved]
  - Rheumatoid arthritis [Not Recovered/Not Resolved]
  - Blood glucose abnormal [Not Recovered/Not Resolved]
